FAERS Safety Report 19064198 (Version 1)
Quarter: 2021Q1

REPORT INFORMATION
  Report Type: Spontaneous
  Country: CA (occurrence: CA)
  Receive Date: 20210326
  Receipt Date: 20210326
  Transmission Date: 20210420
  Serious: Yes (Other)
  Sender: FDA-Public Use
  Company Number: CA-009507513-2103CAN006644

PATIENT
  Age: 58 Year
  Sex: Female
  Weight: 52 kg

DRUGS (13)
  1. CYMBALTA [Suspect]
     Active Substance: DULOXETINE HYDROCHLORIDE
     Indication: PRODUCT USED FOR UNKNOWN INDICATION
     Dosage: DOSAGE FORM NOT SPECIFIED; 30 MILLIGRAM
     Route: 065
  2. TECTA [Suspect]
     Active Substance: PANTOPRAZOLE MAGNESIUM
     Indication: PRODUCT USED FOR UNKNOWN INDICATION
     Dosage: DOSAGE FORM TABLET (ENTERIC?COATED), 40 MILLIGRAM, 1 EVERY 1 DAY
     Route: 048
  3. PROLIA [Concomitant]
     Active Substance: DENOSUMAB
     Dosage: DOSAGE FORM SOLUTION SUBCUTANEOUS, 60 MILLIGRAM
     Route: 058
  4. ACETAMINOPHEN. [Suspect]
     Active Substance: ACETAMINOPHEN
     Indication: PRODUCT USED FOR UNKNOWN INDICATION
     Dosage: DOSAGE FORM NOT SPECIFIED
     Route: 065
  5. BACLOFEN. [Suspect]
     Active Substance: BACLOFEN
     Indication: PRODUCT USED FOR UNKNOWN INDICATION
     Dosage: DOSAGE FORM NOT SPECIFIED; 30 MILLIGRAM
     Route: 065
  6. DIAMICRON [Suspect]
     Active Substance: GLICLAZIDE
     Indication: PRODUCT USED FOR UNKNOWN INDICATION
     Dosage: DOSAGE FORM TABLETS, 30 MILLIGRAM
     Route: 065
  7. TYLENOL [Suspect]
     Active Substance: ACETAMINOPHEN
     Indication: PRODUCT USED FOR UNKNOWN INDICATION
     Dosage: DOSAGE FORM NOT SPECIFIED, 1 DOSAGE FORM, 1 EVERY 1 DAY
     Route: 065
  8. LEUCOVORIN. [Suspect]
     Active Substance: LEUCOVORIN
     Indication: PRODUCT USED FOR UNKNOWN INDICATION
     Dosage: DOSAGE FORM NOT SPECIFIED, 10 MILLIGRAM, 1 EVERY 1 WEEK
     Route: 065
  9. JANUVIA [Suspect]
     Active Substance: SITAGLIPTIN PHOSPHATE
     Indication: PRODUCT USED FOR UNKNOWN INDICATION
     Dosage: DOSAGE FORM TABLET, 100 MILLIGRAM
     Route: 065
  10. MICARDIS [Suspect]
     Active Substance: TELMISARTAN
     Indication: PRODUCT USED FOR UNKNOWN INDICATION
     Dosage: DOSAGE FORM TABLETS, 80 MILLIGRAM, 1 EVERY 1 DAY
     Route: 065
  11. ROSUVASTATIN CALCIUM. [Suspect]
     Active Substance: ROSUVASTATIN CALCIUM
     Indication: PRODUCT USED FOR UNKNOWN INDICATION
     Dosage: DOSAGE FORM TABLET, 5 MILLIGRAM 1 EVERY 1 DAY
     Route: 048
  12. LEFLUNOMIDE. [Suspect]
     Active Substance: LEFLUNOMIDE
     Indication: PRODUCT USED FOR UNKNOWN INDICATION
     Dosage: DOSAGE FORM NOT SPECIFIED
     Route: 065
  13. METFORMIN HYDROCHLORIDE. [Suspect]
     Active Substance: METFORMIN HYDROCHLORIDE
     Indication: PRODUCT USED FOR UNKNOWN INDICATION
     Dosage: 1000 MILLIGRAM, 2 EVERY 1 DAY
     Route: 065

REACTIONS (21)
  - Bursitis [Unknown]
  - Dizziness [Unknown]
  - Haemoglobin increased [Unknown]
  - Muscle atrophy [Unknown]
  - Nausea [Unknown]
  - Hand deformity [Unknown]
  - Musculoskeletal pain [Unknown]
  - Rheumatoid arthritis [Unknown]
  - Rotator cuff syndrome [Unknown]
  - Joint swelling [Unknown]
  - Myalgia [Unknown]
  - Osteoarthritis [Unknown]
  - Pain [Unknown]
  - Scoliosis [Unknown]
  - Joint noise [Unknown]
  - Tendonitis [Unknown]
  - Blood pressure systolic increased [Unknown]
  - Drug ineffective [Unknown]
  - Pain in extremity [Unknown]
  - Hypokinesia [Unknown]
  - Osteoporosis [Unknown]
